FAERS Safety Report 6372452-1 (Version None)
Quarter: 2009Q3

REPORT INFORMATION
  Report Type: 
  Country: None (occurrence: None)
  Receive Date: 20090924
  Receipt Date: 20080729
  Transmission Date: 20100115
  Serious: Yes (Hospitalization)
  Sender: FDA-Public Use
  Company Number: US-ASTRAZENECA-2008UW14866

PATIENT
  Age: 57 Year
  Sex: Male

DRUGS (6)
  1. SEROQUEL [Suspect]
     Indication: HUNTINGTON'S CHOREA
     Route: 048
  2. SEROQUEL [Suspect]
     Indication: PSYCHOTIC DISORDER
     Route: 048
  3. SEROQUEL [Suspect]
     Indication: DEPRESSION
     Route: 048
  4. INVEGA [Suspect]
     Indication: HUNTINGTON'S CHOREA
  5. INVEGA [Suspect]
     Indication: PSYCHOTIC DISORDER
  6. INVEGA [Suspect]
     Indication: DEPRESSION

REACTIONS (1)
  - AGGRESSION [None]
